FAERS Safety Report 20849808 (Version 2)
Quarter: 2022Q3

REPORT INFORMATION
  Report Type: Spontaneous
  Country: DZ (occurrence: DZ)
  Receive Date: 20220519
  Receipt Date: 20220722
  Transmission Date: 20221027
  Serious: Yes (Death, Other)
  Sender: FDA-Public Use
  Company Number: DZ-SA-SAC20220518000715

PATIENT
  Age: 25 Month
  Sex: Male

DRUGS (1)
  1. MYOZYME [Suspect]
     Active Substance: ALGLUCOSIDASE ALFA
     Indication: Glycogen storage disease type II
     Dosage: UNK UNK, QOW
     Route: 065
     Dates: start: 202007, end: 20220510

REACTIONS (3)
  - Respiratory distress [Fatal]
  - Cardiopulmonary failure [Fatal]
  - Cardiac failure [Unknown]

NARRATIVE: CASE EVENT DATE: 20220515
